FAERS Safety Report 6707523 (Version 5)
Quarter: 2013Q2

REPORT INFORMATION
  Report Type: Spontaneous
  Country: DE (occurrence: DE)
  Receive Date: 20080711
  Receipt Date: 20130617
  Transmission Date: 20140414
  Serious: Yes (Hospitalization)
  Sender: FDA-Public Use
  Company Number: 2008BI016187

PATIENT
  Age: 44 Year
  Sex: Female

DRUGS (5)
  1. TYSABRI [Suspect]
     Indication: RELAPSING-REMITTING MULTIPLE SCLEROSIS
     Route: 042
     Dates: start: 200706
  2. LIORESAL [Concomitant]
  3. CIPRAMIL [Concomitant]
  4. CIPROBAY [Concomitant]
     Indication: PRODUCT USED FOR UNKNOWN INDICATION
  5. EUGALAC [Concomitant]

REACTIONS (6)
  - Herpes simplex meningoencephalitis [Recovered/Resolved]
  - Pneumonia [Unknown]
  - Gait disturbance [Unknown]
  - Proteus infection [Unknown]
  - Convulsion [Unknown]
  - Cushing^s syndrome [Unknown]
